FAERS Safety Report 5311092-X (Version None)
Quarter: 2007Q2

REPORT INFORMATION
  Report Type: 
  Country: None (occurrence: None)
  Receive Date: 20070427
  Receipt Date: 20070427
  Transmission Date: 20071010
  Serious: Yes (Hospitalization)
  Sender: FDA-Public Use
  Company Number: None

PATIENT
  Sex: Male
  Weight: 106 kg

DRUGS (1)
  1. TEMOZOLOMIDE [Suspect]
     Dosage: 13410 MG

REACTIONS (13)
  - ANAPLASTIC ASTROCYTOMA [None]
  - ASTHENIA [None]
  - CEREBROVASCULAR ACCIDENT [None]
  - CONFUSIONAL STATE [None]
  - CONVULSION [None]
  - COORDINATION ABNORMAL [None]
  - DISEASE PROGRESSION [None]
  - ENCEPHALOMALACIA [None]
  - HAEMORRHAGE [None]
  - HYDROCEPHALUS [None]
  - HYPONATRAEMIA [None]
  - MENTAL STATUS CHANGES [None]
  - MOTOR DYSFUNCTION [None]
